FAERS Safety Report 6718146-1 (Version None)
Quarter: 2010Q2

REPORT INFORMATION
  Report Type: 
  Country: None (occurrence: None)
  Receive Date: 20100510
  Receipt Date: 20100504
  Transmission Date: 20101027
  Serious: Yes (Life-Threatening)
  Sender: FDA-Public Use
  Company Number: B0651790A

PATIENT
  Sex: Female

DRUGS (11)
  1. AUGMENTIN '125' [Suspect]
     Indication: ENDOCARDITIS PROPHYLAXIS
     Dosage: 2.2G PER DAY
     Route: 042
     Dates: start: 20100114, end: 20100114
  2. FOSICOMBI [Concomitant]
  3. CORDARONE [Concomitant]
  4. THEOLAIR [Concomitant]
  5. XANAX [Concomitant]
  6. COUMADIN [Concomitant]
  7. FENTANYL CITRATE [Concomitant]
  8. PROPOFOL [Concomitant]
  9. NIMBEX [Concomitant]
  10. MIDARINE [Concomitant]
  11. MEPIVACAINE HCL [Concomitant]

REACTIONS (4)
  - ANAPHYLACTIC SHOCK [None]
  - BRONCHOSPASM [None]
  - FACE OEDEMA [None]
  - HYPOTENSION [None]
